FAERS Safety Report 11383336 (Version 1)
Quarter: 2015Q3

REPORT INFORMATION
  Report Type: Spontaneous
  Country: US (occurrence: US)
  Receive Date: 20150814
  Receipt Date: 20150814
  Transmission Date: 20151125
  Serious: No
  Sender: FDA-Public Use
  Company Number: GXBR2015US001807

PATIENT
  Sex: Male

DRUGS (2)
  1. TIZANIDINE SANDOZ [Suspect]
     Active Substance: TIZANIDINE
     Indication: BACK PAIN
     Dosage: 8 MG, QD
     Route: 048
  2. TIZANIDINE SANDOZ [Suspect]
     Active Substance: TIZANIDINE
     Indication: MUSCLE SPASMS

REACTIONS (1)
  - Varicella [Unknown]
